FAERS Safety Report 21811698 (Version 1)
Quarter: 2023Q1

REPORT INFORMATION
  Report Type: Spontaneous
  Country: US (occurrence: None)
  Receive Date: 20230101
  Receipt Date: 20230101
  Transmission Date: 20230418
  Serious: Yes (Other)
  Sender: FDA-Public Use
  Company Number: None

PATIENT
  Sex: Female

DRUGS (11)
  1. HUMIRA [Suspect]
     Active Substance: ADALIMUMAB
     Indication: Rheumatoid arthritis
     Route: 058
     Dates: start: 20190625
  2. AMITRIPTYLIN TAB [Concomitant]
  3. ASPIRIN LOW TAB [Concomitant]
  4. BENICAR TAB [Concomitant]
  5. COQ10 CAP [Concomitant]
  6. D3-50 CAP [Concomitant]
  7. FISH OIL CAP [Concomitant]
  8. LIPITOR TAB [Concomitant]
  9. MULTIVIT/FL CHW [Concomitant]
  10. PREVACID CAP [Concomitant]
  11. ZANTAC TAB [Concomitant]

REACTIONS (1)
  - Therapy interrupted [None]
